FAERS Safety Report 21476361 (Version 1)
Quarter: 2022Q4

REPORT INFORMATION
  Report Type: Report from Study
  Country: US (occurrence: US)
  Receive Date: 20221019
  Receipt Date: 20221019
  Transmission Date: 20230112
  Serious: Yes (Other)
  Sender: FDA-Public Use
  Company Number: US-ABBVIE-4165159

PATIENT
  Age: 53 Year
  Sex: Female

DRUGS (4)
  1. HUMIRA [Suspect]
     Active Substance: ADALIMUMAB
     Indication: Rheumatoid arthritis
     Dosage: CITRATE FREE?FORM STRENGTH 40MG
     Route: 058
  2. PFIZER-BIONTECH COVID-19 VACCINE [Concomitant]
     Active Substance: TOZINAMERAN
     Indication: COVID-19 immunisation
     Dosage: FIRST ADMIN DATE 2021?LAST ADMIN DATE 2021?ONE IN ONCE?FIRST DOSE
     Route: 030
  3. PFIZER-BIONTECH COVID-19 VACCINE [Concomitant]
     Active Substance: TOZINAMERAN
     Indication: COVID-19 immunisation
     Dosage: FIRST ADMIN DATE 2021?LAST ADMIN DATE 2021?ONE IN ONCE?SECOND DOSE
     Route: 030
  4. covid-19 vaccine [Concomitant]
     Indication: COVID-19 immunisation
     Dosage: FIRST ADMIN DATE 2021?LAST ADMIN DATE2021?ONE IN ONCE?THIRD DOSE
     Route: 030

REACTIONS (2)
  - Obstetrical procedure [Recovered/Resolved]
  - Respiratory disorder [Recovered/Resolved]

NARRATIVE: CASE EVENT DATE: 20220801
